FAERS Safety Report 4311307-0 (Version None)
Quarter: 2004Q1

REPORT INFORMATION
  Report Type: 
  Country: None (occurrence: None)
  Receive Date: 20040302
  Receipt Date: 20040302
  Transmission Date: 20041129
  Serious: Yes (Hospitalization)
  Sender: FDA-Public Use
  Company Number: None

PATIENT
  Age: 64 Year
  Sex: Male
  Weight: 90.7194 kg

DRUGS (6)
  1. DUROGESIC PATCH 25 MCG 1HR [Suspect]
     Indication: OSTEOARTHRITIS
     Dosage: 25 MCG Q 72 HOURS TRANSDERMAL
     Route: 062
     Dates: start: 20030917, end: 20031029
  2. LISINOPRIL [Concomitant]
  3. ATENOLOL [Concomitant]
  4. NEURONTIN [Concomitant]
  5. AMBIEN [Concomitant]
  6. GLYBURIDE [Concomitant]

REACTIONS (1)
  - LOCALISED INFECTION [None]
